FAERS Safety Report 11059391 (Version 1)
Quarter: 2015Q2

REPORT INFORMATION
  Report Type: Spontaneous
  Country: US (occurrence: None)
  Receive Date: 20150422
  Receipt Date: 20150422
  Transmission Date: 20150821
  Serious: Yes (Life-Threatening, Hospitalization, Disabling, Other)
  Sender: FDA-Public Use
  Company Number: None

PATIENT
  Age: 61 Year
  Sex: Male
  Weight: 79.38 kg

DRUGS (3)
  1. CELEBREX [Suspect]
     Active Substance: CELECOXIB
     Indication: ARTHRITIS
     Dosage: ONE PILL, QD, ORAL
     Route: 048
     Dates: start: 19980416, end: 20150416
  2. CELEBREX [Suspect]
     Active Substance: CELECOXIB
     Indication: PAIN
     Dosage: ONE PILL, QD, ORAL
     Route: 048
     Dates: start: 19980416, end: 20150416
  3. CELEBREX [Suspect]
     Active Substance: CELECOXIB
     Dosage: ONE PILL, QD, ORAL
     Route: 048
     Dates: start: 19980416, end: 20150416

REACTIONS (13)
  - Deep vein thrombosis [None]
  - Hypothyroidism [None]
  - Hypertension [None]
  - Type 2 diabetes mellitus [None]
  - Anaemia [None]
  - Cardiac failure congestive [None]
  - Fatigue [None]
  - Depression [None]
  - Narcolepsy [None]
  - Blood triglycerides increased [None]
  - Sleep apnoea syndrome [None]
  - Blood cholesterol increased [None]
  - Cerebrovascular accident [None]

NARRATIVE: CASE EVENT DATE: 20111111
